FAERS Safety Report 13262715 (Version 3)
Quarter: 2020Q4

REPORT INFORMATION
  Report Type: Report from Study
  Country: JP (occurrence: JP)
  Receive Date: 20170223
  Receipt Date: 20201002
  Transmission Date: 20210113
  Serious: Yes (Hospitalization)
  Sender: FDA-Public Use
  Company Number: JP-AMGEN-JPNSP2011059802

PATIENT
  Age: 37 Year
  Sex: Female
  Weight: 43 kg

DRUGS (3)
  1. ROMIPLOSTIM [Suspect]
     Active Substance: ROMIPLOSTIM
     Dosage: 1 MICROGRAM/KILOGRAM
     Route: 058
     Dates: start: 20111006, end: 20111006
  2. ROMIPLOSTIM [Suspect]
     Active Substance: ROMIPLOSTIM
     Dosage: 2 MICROGRAM/KILOGRAM
     Route: 058
     Dates: start: 20111013, end: 20111013
  3. ROMIPLOSTIM [Suspect]
     Active Substance: ROMIPLOSTIM
     Indication: IMMUNE THROMBOCYTOPENIA
     Dosage: 1 MICROGRAM/KILOGRAM, QWK
     Route: 058
     Dates: start: 20110811, end: 20110818

REACTIONS (4)
  - Exposure during pregnancy [Unknown]
  - Platelet count decreased [Recovered/Resolved]
  - Foetal growth restriction [Recovered/Resolved]
  - Delivery [Unknown]

NARRATIVE: CASE EVENT DATE: 20111019
